FAERS Safety Report 8924821 (Version 2)
Quarter: 2012Q4

REPORT INFORMATION
  Report Type: 
  Country: GR (occurrence: GR)
  Receive Date: 20121126
  Receipt Date: 20121129
  Transmission Date: 20130627
  Serious: Yes (Life-Threatening, Hospitalization)
  Sender: FDA-Public Use
  Company Number: GR-ELI_LILLY_AND_COMPANY-GR201211005136

PATIENT
  Age: 68 Year
  Sex: Male
  Weight: 87 kg

DRUGS (3)
  1. GEMZAR [Suspect]
     Indication: BLADDER CANCER
     Dosage: 1800 mg, unknown
     Route: 042
     Dates: start: 20121029
  2. GEMZAR [Suspect]
     Dosage: 200 mg, unknown
     Route: 042
     Dates: start: 20121114
  3. GEMZAR [Suspect]
     Dosage: 1000 mg, unknown
     Route: 042
     Dates: start: 20121114

REACTIONS (8)
  - Dyspnoea [Recovered/Resolved]
  - Oxygen saturation decreased [Recovered/Resolved]
  - Breath sounds abnormal [Recovered/Resolved]
  - Tachypnoea [Recovered/Resolved]
  - Tachycardia [Recovered/Resolved]
  - Oxygen saturation decreased [Recovered/Resolved]
  - Bronchospasm [Recovered/Resolved]
  - Prolonged expiration [Recovered/Resolved]
